FAERS Safety Report 25366027 (Version 3)
Quarter: 2025Q2

REPORT INFORMATION
  Report Type: Report from Study
  Country: US (occurrence: US)
  Receive Date: 20250528
  Receipt Date: 20250610
  Transmission Date: 20250717
  Serious: Yes (Other)
  Sender: ABBVIE
  Company Number: US-ABBVIE-6300822

PATIENT
  Age: 41 Year
  Sex: Female

DRUGS (2)
  1. SKYRIZI [Suspect]
     Active Substance: RISANKIZUMAB-RZAA
     Indication: Crohn^s disease
     Route: 058
     Dates: start: 20230621
  2. SKYRIZI [Suspect]
     Active Substance: RISANKIZUMAB-RZAA
     Route: 058
     Dates: start: 20231017

REACTIONS (6)
  - Gallbladder disorder [Recovered/Resolved]
  - Crohn^s disease [Recovering/Resolving]
  - Endoscopic retrograde cholangiopancreatography [Recovered/Resolved]
  - Endoscopic retrograde cholangiopancreatography [Recovered/Resolved]
  - Thrombosis [Unknown]
  - Gallbladder disorder [Unknown]

NARRATIVE: CASE EVENT DATE: 20241001
